FAERS Safety Report 7789791-X (Version None)
Quarter: 2011Q3

REPORT INFORMATION
  Report Type: 
  Country: None (occurrence: None)
  Receive Date: 20110930
  Receipt Date: 20110531
  Transmission Date: 20111222
  Serious: No
  Sender: FDA-Public Use
  Company Number: US-ASTRAZENECA-2010SE27150

PATIENT
  Age: 68 Year
  Sex: Female

DRUGS (4)
  1. SYMBICORT [Concomitant]
  2. ARIMIDEX [Suspect]
     Indication: BREAST CANCER
     Route: 048
  3. COMBIVENT [Concomitant]
  4. ANASTROZOLE [Suspect]

REACTIONS (5)
  - GENERAL SYMPTOM [None]
  - URINARY INCONTINENCE [None]
  - URINE COLOUR ABNORMAL [None]
  - URINE ODOUR ABNORMAL [None]
  - SEXUAL DYSFUNCTION [None]
